FAERS Safety Report 5429341-6 (Version None)
Quarter: 2007Q3

REPORT INFORMATION
  Report Type: 
  Country: None (occurrence: None)
  Receive Date: 20070827
  Receipt Date: 20070827
  Transmission Date: 20080115
  Serious: Yes (Other)
  Sender: FDA-Public Use
  Company Number: None

PATIENT
  Age: 40 Year
  Sex: Female
  Weight: 79.3795 kg

DRUGS (1)
  1. LUPRON [Suspect]
     Dosage: ONCE PER MONTH IM
     Route: 030
     Dates: start: 20060117, end: 20060717

REACTIONS (16)
  - ABDOMINAL DISTENSION [None]
  - ARTHRALGIA [None]
  - DYSPNOEA [None]
  - EMOTIONAL DISORDER [None]
  - FATIGUE [None]
  - GAIT DISTURBANCE [None]
  - GASTROINTESTINAL DISORDER [None]
  - GOITRE [None]
  - HEPATOMEGALY [None]
  - LOCAL SWELLING [None]
  - MOOD ALTERED [None]
  - MYALGIA [None]
  - PRURITUS [None]
  - RASH ERYTHEMATOUS [None]
  - THYROID NEOPLASM [None]
  - WEIGHT INCREASED [None]
